FAERS Safety Report 11897461 (Version 1)
Quarter: 2016Q1

REPORT INFORMATION
  Report Type: Spontaneous
  Country: GB (occurrence: GB)
  Receive Date: 20160108
  Receipt Date: 20160108
  Transmission Date: 20160526
  Serious: Yes (Life-Threatening, Hospitalization, Other)
  Sender: FDA-Public Use
  Company Number: GB-BRISTOL-MYERS SQUIBB COMPANY-10568814

PATIENT
  Age: 31 Year
  Sex: Female

DRUGS (3)
  1. NEVIRAPINE. [Concomitant]
     Active Substance: NEVIRAPINE
     Indication: PRODUCT USED FOR UNKNOWN INDICATION
     Dosage: UNK MG, UNK
     Route: 065
  2. VIDEX [Suspect]
     Active Substance: DIDANOSINE
     Indication: HIV INFECTION
     Dosage: 400 MG, QD
     Route: 048
     Dates: start: 19980702, end: 20001003
  3. ZERIT [Suspect]
     Active Substance: STAVUDINE
     Indication: HIV INFECTION
     Dosage: 80 MG, QD
     Route: 048
     Dates: start: 19980702, end: 20001003

REACTIONS (6)
  - Lactic acidosis [Recovered/Resolved]
  - Live birth [Unknown]
  - Pancreatitis acute [Recovered/Resolved]
  - Caesarean section [Unknown]
  - Pregnancy [Recovered/Resolved]
  - Mitochondrial toxicity [Unknown]

NARRATIVE: CASE EVENT DATE: 2000
